FAERS Safety Report 5618679-5 (Version None)
Quarter: 2008Q1

REPORT INFORMATION
  Report Type: 
  Country: None (occurrence: None)
  Receive Date: 20080207
  Receipt Date: 20080129
  Transmission Date: 20080703
  Serious: Yes (Other)
  Sender: FDA-Public Use
  Company Number: US-JNJFOC-20080107554

PATIENT
  Sex: Male
  Weight: 80.74 kg

DRUGS (7)
  1. TOPAMAX [Suspect]
     Route: 065
  2. TOPAMAX [Suspect]
     Route: 065
  3. TOPAMAX [Suspect]
     Indication: CONVULSION
     Route: 065
  4. TOPROL-XL [Suspect]
  5. TOPROL-XL [Suspect]
     Indication: DRUG USE FOR UNKNOWN INDICATION
  6. ACIPHEX [Concomitant]
     Indication: GASTRIC DISORDER
  7. FLOMAX [Concomitant]
     Indication: PROSTATIC DISORDER

REACTIONS (4)
  - CONVULSION [None]
  - DRUG DISPENSING ERROR [None]
  - FEELING ABNORMAL [None]
  - HEART RATE IRREGULAR [None]
